FAERS Safety Report 18344074 (Version 1)
Quarter: 2020Q4

REPORT INFORMATION
  Report Type: Spontaneous
  Country: NL (occurrence: NL)
  Receive Date: 20201005
  Receipt Date: 20201005
  Transmission Date: 20210114
  Serious: Yes (Other)
  Sender: FDA-Public Use
  Company Number: NL-TEVA-2020-NL-1835018

PATIENT
  Age: 69 Year
  Sex: Female

DRUGS (1)
  1. CAPECITABINE TABLET FO 500MG / BRAND NAME NOT SPECIFIED [Suspect]
     Active Substance: CAPECITABINE
     Indication: BREAST CANCER
     Dosage: 2DD1800MG, UNIT DOSE:  1800 MG, THERAPY END DATE : ASKU
     Dates: start: 20200106

REACTIONS (1)
  - Neovascular age-related macular degeneration [Recovering/Resolving]

NARRATIVE: CASE EVENT DATE: 20200831
